FAERS Safety Report 20986548 (Version 1)
Quarter: 2022Q2

REPORT INFORMATION
  Report Type: 
  Country: US (occurrence: US)
  Receive Date: 20220621
  Receipt Date: 20220621
  Transmission Date: 20220721
  Serious: No
  Sender: FDA-Public Use
  Company Number: US-C B Fleet Co Inc-202108-US-002638

PATIENT
  Sex: Female

DRUGS (1)
  1. NIX [Suspect]
     Active Substance: PERMETHRIN
     Indication: Product used for unknown indication
     Dosage: USED PRODUCT TWICE - 5 DAYS BETWEEN TREATMENTS
     Route: 061

REACTIONS (4)
  - Application site pustules [Not Recovered/Not Resolved]
  - Inappropriate schedule of product administration [None]
  - Wrong technique in product usage process [None]
  - Product used for unknown indication [None]
